FAERS Safety Report 17462843 (Version 3)
Quarter: 2022Q2

REPORT INFORMATION
  Report Type: Spontaneous
  Country: DE (occurrence: DE)
  Receive Date: 20200226
  Receipt Date: 20220603
  Transmission Date: 20220721
  Serious: Yes (Other)
  Sender: FDA-Public Use
  Company Number: DE-002147023-NVSC2019DE008752

PATIENT
  Sex: Female

DRUGS (10)
  1. VALSARTAN [Suspect]
     Active Substance: VALSARTAN
     Indication: Hypertension
     Dosage: 320 MILLIGRAM, QD
     Route: 065
     Dates: start: 2008, end: 201812
  2. HYDROCHLOROTHIAZIDE\VALSARTAN [Suspect]
     Active Substance: HYDROCHLOROTHIAZIDE\VALSARTAN
     Indication: Hypertension
     Dosage: 1 DOSAGE FORM, QD ((320/25 MG) IN THE MORNING AT 07:00 AM)
  3. IBUPROFEN [Concomitant]
     Active Substance: IBUPROFEN
     Indication: Product used for unknown indication
     Dosage: 300 MG, QD (CONCENTRATION: 800 UNIT NOT SPCEIFIED)
     Route: 065
     Dates: start: 2014
  4. METAMIZOLE [Concomitant]
     Active Substance: METAMIZOLE
     Indication: Product used for unknown indication
     Dosage: UNK
     Route: 065
     Dates: start: 2015, end: 2015
  5. PREDNISOLONE [Concomitant]
     Active Substance: PREDNISOLONE
     Indication: Product used for unknown indication
     Dosage: UNK
  6. DICLOFENAC [Concomitant]
     Active Substance: DICLOFENAC
     Indication: Product used for unknown indication
     Dosage: UNK
  7. PANTOPRAZOLE [Concomitant]
     Active Substance: PANTOPRAZOLE
     Indication: Product used for unknown indication
     Dosage: UNK
  8. CIPROFLOXACIN HYDROCHLORIDE [Concomitant]
     Active Substance: CIPROFLOXACIN HYDROCHLORIDE
     Indication: Product used for unknown indication
     Dosage: UNK
  9. HYDROXYCHLOROQUINE [Concomitant]
     Active Substance: HYDROXYCHLOROQUINE
     Indication: Product used for unknown indication
     Dosage: UNK
  10. SPASMAX [Concomitant]
     Indication: Product used for unknown indication
     Dosage: UNK

REACTIONS (14)
  - Type 2 diabetes mellitus [Unknown]
  - Emotional distress [Unknown]
  - Asthma [Unknown]
  - Arthritis [Unknown]
  - Neurodermatitis [Unknown]
  - Osteoarthritis [Unknown]
  - Dyspnoea [Unknown]
  - Headache [Unknown]
  - Diarrhoea [Unknown]
  - Dry mouth [Unknown]
  - Dizziness [Unknown]
  - Abdominal pain [Unknown]
  - Anxiety disorder [Unknown]
  - Sleep disorder [Unknown]

NARRATIVE: CASE EVENT DATE: 20120101
